FAERS Safety Report 17606941 (Version 2)
Quarter: 2020Q2

REPORT INFORMATION
  Report Type: Spontaneous
  Country: US (occurrence: US)
  Receive Date: 20200331
  Receipt Date: 20200402
  Transmission Date: 20200713
  Serious: Yes (Other)
  Sender: FDA-Public Use
  Company Number: US-PFIZER INC-2020126869

PATIENT
  Age: 72 Year
  Sex: Female
  Weight: 68 kg

DRUGS (1)
  1. PREGABALIN. [Suspect]
     Active Substance: PREGABALIN
     Indication: FIBROMYALGIA
     Dosage: UNK

REACTIONS (11)
  - Anaphylactic shock [Unknown]
  - Pruritus [Unknown]
  - Feeling of body temperature change [Unknown]
  - Tremor [Unknown]
  - Confusional state [Unknown]
  - Dizziness [Unknown]
  - Somnolence [Unknown]
  - Drug ineffective [Unknown]
  - Depressed mood [Unknown]
  - Drug hypersensitivity [Unknown]
  - Decreased appetite [Unknown]
